FAERS Safety Report 8372493 (Version 2)
Quarter: 2013Q1

REPORT INFORMATION
  Report Type: Report from Study
  Country: US (occurrence: US)
  Receive Date: 20120129
  Receipt Date: 20130129
  Transmission Date: 20140127
  Serious: No
  Sender: FDA-Public Use
  Company Number: US-ABBOTT-11P-163-0868734-00

PATIENT
  Age: 37 Year
  Sex: Male
  Weight: 106.69 kg

DRUGS (9)
  1. HUMIRA 40 MG/0.8 ML PEN [Suspect]
     Indication: PSORIATIC ARTHROPATHY
     Dates: start: 20110916, end: 20110916
  2. HUMIRA 40 MG/0.8 ML PEN [Suspect]
     Dates: start: 20111011, end: 20120116
  3. METHOTREXATE [Suspect]
     Indication: PSORIATIC ARTHROPATHY
     Dates: start: 201107, end: 20111013
  4. IBUPROFEN [Concomitant]
     Indication: PRODUCT USED FOR UNKNOWN INDICATION
     Dosage: 600MG, DAILY
  5. VOLTAREN [Concomitant]
     Indication: PRODUCT USED FOR UNKNOWN INDICATION
     Dosage: HIPS AND LOWER BACK FEW DAYS, AS NEEDED
     Route: 061
  6. FOLIC ACID [Concomitant]
     Indication: PRODUCT USED FOR UNKNOWN INDICATION
     Dates: end: 20111013
  7. ADVIL [Concomitant]
     Indication: PAIN
  8. TYLENOL [Concomitant]
     Indication: PAIN
  9. LORATAB [Concomitant]
     Indication: PAIN
     Route: 048

REACTIONS (36)
  - Musculoskeletal stiffness [Recovering/Resolving]
  - Fatigue [Recovering/Resolving]
  - Pain in extremity [Not Recovered/Not Resolved]
  - Back pain [Not Recovered/Not Resolved]
  - Muscular weakness [Recovering/Resolving]
  - Muscular weakness [Recovering/Resolving]
  - Joint stiffness [Recovering/Resolving]
  - Mobility decreased [Recovering/Resolving]
  - Lethargy [Recovering/Resolving]
  - Asthenia [Recovering/Resolving]
  - Asthenia [Recovering/Resolving]
  - Injection site pain [Not Recovered/Not Resolved]
  - Injection site bruising [Unknown]
  - Rash macular [Unknown]
  - Erythema [Unknown]
  - Dry skin [Unknown]
  - Muscle strain [Unknown]
  - Myalgia [Unknown]
  - Arthralgia [Unknown]
  - Arthralgia [Unknown]
  - Arthralgia [Unknown]
  - Joint range of motion decreased [Unknown]
  - Ankylosing spondylitis [Unknown]
  - Rheumatoid arthritis [Unknown]
  - Nonspecific reaction [Unknown]
  - Musculoskeletal stiffness [Recovering/Resolving]
  - Joint stiffness [Recovering/Resolving]
  - Musculoskeletal stiffness [Recovering/Resolving]
  - Joint stiffness [Recovering/Resolving]
  - Arthralgia [Recovering/Resolving]
  - Tenderness [Recovering/Resolving]
  - Tenderness [Recovering/Resolving]
  - Tenderness [Recovering/Resolving]
  - Tenderness [Recovering/Resolving]
  - Tenderness [Recovering/Resolving]
  - Muscular weakness [Recovering/Resolving]
